FAERS Safety Report 4392092-3 (Version None)
Quarter: 2004Q3

REPORT INFORMATION
  Report Type: 
  Country: None (occurrence: None)
  Receive Date: 20040702
  Receipt Date: 20040702
  Transmission Date: 20050211
  Serious: Yes (Other)
  Sender: FDA-Public Use
  Company Number: None

PATIENT
  Age: 14 Year
  Sex: Male
  Weight: 101.7 kg

DRUGS (2)
  1. DEFEROXAMINE MESYLATE 4000 MG [Suspect]
     Indication: BLOOD IRON INCREASED
     Dosage: 4000 MG + 10 MG QHS SQ X 5 NIGHTLY /WK
     Route: 058
  2. HYDROCORTISONE 10MG TAB [Suspect]

REACTIONS (1)
  - INJECTION SITE IRRITATION [None]
